FAERS Safety Report 5596599-2 (Version None)
Quarter: 2008Q1

REPORT INFORMATION
  Report Type: 
  Country: None (occurrence: None)
  Receive Date: 20080118
  Receipt Date: 20080109
  Transmission Date: 20080703
  Serious: Yes (Other)
  Sender: FDA-Public Use
  Company Number: US-PFIZER INC-2008003024

PATIENT
  Sex: Female

DRUGS (4)
  1. GEODON [Suspect]
  2. DEPAKOTE [Concomitant]
  3. SEROQUEL [Concomitant]
  4. RISPERIDONE [Concomitant]

REACTIONS (4)
  - ABASIA [None]
  - ADVERSE DRUG REACTION [None]
  - FALL [None]
  - PARKINSON'S DISEASE [None]
